FAERS Safety Report 4795220-0 (Version None)
Quarter: 2005Q4

REPORT INFORMATION
  Report Type: 
  Country: None (occurrence: None)
  Receive Date: 20051005
  Receipt Date: 20051005
  Transmission Date: 20060501
  Serious: Yes (Life-Threatening, Congenital Anomaly)
  Sender: FDA-Public Use
  Company Number: None

PATIENT
  Age: 23 Year
  Sex: Female
  Weight: 52.1637 kg

DRUGS (1)
  1. LARIAM [Suspect]
     Indication: MALARIA PROPHYLAXIS
     Dosage: 1 PILL /WK
     Dates: start: 19970901, end: 19980901

REACTIONS (4)
  - ANXIETY [None]
  - NIGHTMARE [None]
  - PARANOIA [None]
  - SUICIDE ATTEMPT [None]
